FAERS Safety Report 15541938 (Version 1)
Quarter: 2018Q4

REPORT INFORMATION
  Report Type: Spontaneous
  Country: US (occurrence: US)
  Receive Date: 20181023
  Receipt Date: 20181023
  Transmission Date: 20190205
  Serious: No
  Sender: FDA-Public Use
  Company Number: US-TEVA-2018-US-965102

PATIENT
  Age: 56 Year
  Sex: Male

DRUGS (1)
  1. ACTAVIS FENTANYL PATCH [Suspect]
     Active Substance: FENTANYL
     Route: 062

REACTIONS (1)
  - Drug effect decreased [Unknown]
